FAERS Safety Report 10144706 (Version 1)
Quarter: 2014Q2

REPORT INFORMATION
  Report Type: Spontaneous
  Country: US (occurrence: US)
  Receive Date: 20140430
  Receipt Date: 20140430
  Transmission Date: 20141212
  Serious: No
  Sender: FDA-Public Use
  Company Number: US-SANOFI-AVENTIS-2013SA066073

PATIENT
  Age: 65 Year
  Sex: Male

DRUGS (4)
  1. LOVENOX [Suspect]
     Route: 065
     Dates: start: 20130619
  2. CUBICIN [Concomitant]
     Route: 065
  3. ROCEPHIN [Concomitant]
     Route: 065
  4. FLAGYL [Concomitant]
     Route: 065

REACTIONS (1)
  - Blood creatinine increased [Not Recovered/Not Resolved]
